FAERS Safety Report 8337618-X (Version None)
Quarter: 2012Q2

REPORT INFORMATION
  Report Type: 
  Country: None (occurrence: None)
  Receive Date: 20120504
  Receipt Date: 20120426
  Transmission Date: 20120825
  Serious: Yes (Hospitalization, Other)
  Sender: FDA-Public Use
  Company Number: PHHY2012JP036845

PATIENT
  Age: 87 Year
  Sex: Female
  Weight: 49 kg

DRUGS (12)
  1. VERAPAMIL HYDROCHLORIDE [Suspect]
     Dosage: ONE TABLET ONCE DAILY
     Route: 048
     Dates: start: 20110902, end: 20110912
  2. METILDIGOXIN [Suspect]
     Dosage: ONE TABLET ONCE DAILY
     Route: 048
     Dates: start: 20110902, end: 20110912
  3. KERLONE [Concomitant]
     Route: 048
     Dates: end: 20110909
  4. SULPIRIDE [Concomitant]
     Dosage: 50 MG
     Route: 048
     Dates: end: 20110909
  5. CELESTAMINE TAB [Concomitant]
     Route: 048
  6. FUROSEMIDE [Suspect]
     Dosage: 20MG ONCE DAILY
     Route: 048
     Dates: start: 20110902, end: 20110905
  7. DEPAS [Concomitant]
     Route: 048
     Dates: end: 20110909
  8. LENDORMIN [Concomitant]
     Route: 048
     Dates: end: 20110909
  9. TEGRETOL [Suspect]
     Indication: EPILEPSY
     Dosage: 200 MG, BID
     Route: 048
     Dates: start: 20110819, end: 20110831
  10. NORVASC [Concomitant]
     Route: 048
     Dates: end: 20110909
  11. PURSENNID [Concomitant]
     Route: 048
     Dates: end: 20110909
  12. ISOSORBIDE DINITRATE [Concomitant]
     Route: 048
     Dates: end: 20110909

REACTIONS (4)
  - URTICARIA [None]
  - TOXIC SKIN ERUPTION [None]
  - FALL [None]
  - GENERALISED ERYTHEMA [None]
